FAERS Safety Report 17778409 (Version 1)
Quarter: 2020Q2

REPORT INFORMATION
  Report Type: Report from Study
  Country: US (occurrence: US)
  Receive Date: 20200514
  Receipt Date: 20200514
  Transmission Date: 20200714
  Serious: Yes (Other)
  Sender: FDA-Public Use
  Company Number: US-ROCHE-2598313

PATIENT

DRUGS (6)
  1. ERLOTINIB [Suspect]
     Active Substance: ERLOTINIB
     Indication: NEOPLASM
     Route: 048
  2. BEVACIZUMAB. [Suspect]
     Active Substance: BEVACIZUMAB
     Indication: NEOPLASM
     Route: 042
  3. BEVACIZUMAB. [Suspect]
     Active Substance: BEVACIZUMAB
     Indication: METASTATIC NEOPLASM
  4. CETUXIMAB. [Suspect]
     Active Substance: CETUXIMAB
     Indication: NEOPLASM
     Dosage: LOADING DOSE
     Route: 042
  5. CETUXIMAB. [Suspect]
     Active Substance: CETUXIMAB
     Indication: METASTATIC NEOPLASM
     Dosage: LOADING DOSE
     Route: 042
  6. ERLOTINIB [Suspect]
     Active Substance: ERLOTINIB
     Indication: METASTATIC NEOPLASM

REACTIONS (8)
  - Rash [Unknown]
  - Aspartate aminotransferase increased [Unknown]
  - Anaemia [Unknown]
  - Vaginal fistula [Unknown]
  - Pruritus [Unknown]
  - Alanine aminotransferase increased [Unknown]
  - Haemorrhage [Unknown]
  - Hypomagnesaemia [Unknown]
